FAERS Safety Report 12943562 (Version 1)
Quarter: 2016Q4

REPORT INFORMATION
  Report Type: Spontaneous
  Country: DK (occurrence: DK)
  Receive Date: 20161115
  Receipt Date: 20161115
  Transmission Date: 20170207
  Serious: Yes (Death, Other)
  Sender: FDA-Public Use
  Company Number: DK-ELI_LILLY_AND_COMPANY-DK201611003582

PATIENT
  Sex: Male

DRUGS (3)
  1. CISPLATIN. [Concomitant]
     Active Substance: CISPLATIN
     Indication: SQUAMOUS CELL CARCINOMA
     Dosage: UNK
     Route: 065
     Dates: start: 20150122, end: 201510
  2. TAXOL [Suspect]
     Active Substance: PACLITAXEL
     Indication: SQUAMOUS CELL CARCINOMA
     Dosage: UNK
     Route: 065
     Dates: start: 20150509, end: 201510
  3. GEMCITABINE HYDROCHLORIDE. [Suspect]
     Active Substance: GEMCITABINE HYDROCHLORIDE
     Indication: SQUAMOUS CELL CARCINOMA
     Dosage: UNK
     Route: 065
     Dates: start: 20150122, end: 201510

REACTIONS (3)
  - Malignant neoplasm progression [Fatal]
  - Polyneuropathy [Not Recovered/Not Resolved]
  - Pulmonary necrosis [Unknown]
